FAERS Safety Report 4587007-9 (Version None)
Quarter: 2005Q1

REPORT INFORMATION
  Report Type: 
  Country: None (occurrence: None)
  Receive Date: 20050218
  Receipt Date: 20050107
  Transmission Date: 20050727
  Serious: Yes (Hospitalization, Disabling)
  Sender: FDA-Public Use
  Company Number: US-MERCK-0501USA00716

PATIENT
  Age: 51 Year
  Sex: Male

DRUGS (2)
  1. VIOXX [Suspect]
     Indication: ARTHRITIS
     Route: 048
     Dates: start: 20010101, end: 20040101
  2. DILANTIN [Concomitant]
     Route: 065

REACTIONS (3)
  - ANXIETY [None]
  - EMOTIONAL DISORDER [None]
  - FATIGUE [None]
